FAERS Safety Report 8618829-2 (Version None)
Quarter: 2012Q3

REPORT INFORMATION
  Report Type: 
  Country: None (occurrence: None)
  Receive Date: 20120810
  Receipt Date: 20120730
  Transmission Date: 20120928
  Serious: Yes (Disabling, Other)
  Sender: FDA-Public Use
  Company Number: 2012P1050218

PATIENT
  Age: 50 Year
  Sex: Female

DRUGS (4)
  1. DURAMORPH PF [Suspect]
     Indication: PAIN
     Dosage: X1; INTH
     Route: 037
     Dates: start: 20091201, end: 20091201
  2. OXYCODONE HCL [Concomitant]
  3. MULTI-VITAMIN [Concomitant]
  4. UNSPECIFIED MEDICATIONS [Concomitant]

REACTIONS (8)
  - PAIN [None]
  - BLADDER DYSFUNCTION [None]
  - BALANCE DISORDER [None]
  - COORDINATION ABNORMAL [None]
  - FATIGUE [None]
  - GAIT DISTURBANCE [None]
  - ARACHNOIDITIS [None]
  - PAIN IN EXTREMITY [None]
